FAERS Safety Report 4394174-9 (Version None)
Quarter: 2004Q3

REPORT INFORMATION
  Report Type: 
  Country: None (occurrence: None)
  Receive Date: 20040712
  Receipt Date: 20040629
  Transmission Date: 20050211
  Serious: Yes (Hospitalization)
  Sender: FDA-Public Use
  Company Number: CA-ROCHE-372604

PATIENT
  Age: 66 Year
  Sex: Male
  Weight: 95 kg

DRUGS (9)
  1. CAPECITABINE [Suspect]
     Dosage: FIRST DOSE IN THE EVENING OF DAY 1 AND THE LAST IN THE MORNING OF DAY 15, GIVEN AS INTERMITTENT TRE+
     Route: 048
     Dates: start: 20040608
  2. BLINDED BEVACIZUMAB [Suspect]
     Route: 042
     Dates: start: 20040607
  3. OXALIPLATIN [Suspect]
     Dosage: ACUTAL DOSE 274MG.
     Route: 042
     Dates: start: 20040607
  4. PULMICORT [Concomitant]
     Dates: start: 19950615
  5. BRICANYL [Concomitant]
     Dates: start: 19950615
  6. NEXIUM [Concomitant]
     Dates: start: 20040515
  7. ONDANSETRON [Concomitant]
     Dates: start: 20040607, end: 20040608
  8. DEXAMETHASONE [Concomitant]
     Dates: start: 20040607, end: 20040607
  9. IMODIUM [Concomitant]
     Dates: start: 20040624

REACTIONS (1)
  - LARGE INTESTINAL OBSTRUCTION [None]
